FAERS Safety Report 16145691 (Version 1)
Quarter: 2019Q2

REPORT INFORMATION
  Report Type: Spontaneous
  Country: US (occurrence: US)
  Receive Date: 20190227
  Receipt Date: 20190227
  Transmission Date: 20190711
  Serious: No
  Sender: FDA-Public Use
  Company Number: None

PATIENT
  Age: 83 Year
  Sex: Female

DRUGS (3)
  1. FASLODEX [Concomitant]
     Active Substance: FULVESTRANT
  2. VERZENIO [Suspect]
     Active Substance: ABEMACICLIB
     Dates: start: 201812
  3. XGEVA [Concomitant]
     Active Substance: DENOSUMAB

REACTIONS (4)
  - Therapy cessation [None]
  - Acute kidney injury [None]
  - Nausea [None]
  - Vomiting [None]

NARRATIVE: CASE EVENT DATE: 20181215
